FAERS Safety Report 24014925 (Version 1)
Quarter: 2024Q2

REPORT INFORMATION
  Report Type: Spontaneous
  Country: SK (occurrence: SK)
  Receive Date: 20240626
  Receipt Date: 20240626
  Transmission Date: 20240716
  Serious: Yes (Other)
  Sender: FDA-Public Use
  Company Number: SK-TAKEDA-2024TUS062472

PATIENT
  Age: 15 Year
  Sex: Male

DRUGS (2)
  1. ENTYVIO [Suspect]
     Active Substance: VEDOLIZUMAB
     Indication: Crohn^s disease
     Dosage: UNK
     Route: 065
     Dates: start: 202404
  2. ENTYVIO [Suspect]
     Active Substance: VEDOLIZUMAB
     Indication: Neoplasm malignant

REACTIONS (2)
  - Neoplasm malignant [Unknown]
  - Off label use [Unknown]
